FAERS Safety Report 9979719 (Version 1)
Quarter: 2014Q1

REPORT INFORMATION
  Report Type: Report from Study
  Country: US (occurrence: US)
  Receive Date: 20140306
  Receipt Date: 20140306
  Transmission Date: 20141002
  Serious: No
  Sender: FDA-Public Use
  Company Number: US-ABBVIE-13P-163-1172488-00

PATIENT
  Age: 54 Year
  Sex: Female

DRUGS (6)
  1. HUMIRA [Suspect]
     Indication: RHEUMATOID ARTHRITIS
     Dates: start: 20131007
  2. METHOTREXATE [Concomitant]
     Indication: PSORIATIC ARTHROPATHY
     Route: 048
  3. METHOTREXATE [Concomitant]
     Indication: RHEUMATOID ARTHRITIS
  4. MORPHINE [Concomitant]
     Indication: ARTHRALGIA
     Route: 048
  5. GABAPENTIN [Concomitant]
     Indication: ARTHRALGIA
     Route: 048
  6. EXCEDRIN [Concomitant]
     Indication: PAIN
     Dosage: 250/250 MG AS NEEDED
     Route: 048

REACTIONS (1)
  - Dizziness [Not Recovered/Not Resolved]
